FAERS Safety Report 8169181-0 (Version None)
Quarter: 2012Q1

REPORT INFORMATION
  Report Type: 
  Country: None (occurrence: None)
  Receive Date: 20120227
  Receipt Date: 20120216
  Transmission Date: 20120608
  Serious: Yes (Hospitalization)
  Sender: FDA-Public Use
  Company Number: US-ASTRAZENECA-2012SE08486

PATIENT
  Sex: Female

DRUGS (3)
  1. SEROQUEL XR [Suspect]
     Indication: BIPOLAR DISORDER
     Dosage: ONE TABLET IN AFTERNOON AND ANOTHER TABLET IN EVENING
     Route: 048
  2. SEROQUEL XR [Suspect]
     Route: 048
     Dates: start: 20120203
  3. KLONOPIN [Concomitant]

REACTIONS (5)
  - EAR PAIN [None]
  - DYSPHAGIA [None]
  - INFECTION [None]
  - OROPHARYNGEAL PAIN [None]
  - DIARRHOEA [None]
